FAERS Safety Report 6538575-9 (Version None)
Quarter: 2010Q1

REPORT INFORMATION
  Report Type: 
  Country: None (occurrence: None)
  Receive Date: 20100113
  Receipt Date: 20100113
  Transmission Date: 20100710
  Serious: Yes (Life-Threatening, Disabling, Other)
  Sender: FDA-Public Use
  Company Number: None

PATIENT
  Sex: Male
  Weight: 68.0396 kg

DRUGS (3)
  1. DEPAKOTE [Suspect]
     Indication: CONVULSION
     Dosage: 2000 MG 3X PO 4 - 8 YEARS
     Route: 048
     Dates: start: 20070101, end: 20100113
  2. DEPAKOTE [Suspect]
     Indication: MOOD SWINGS
     Dosage: 2000 MG 3X PO 4 - 8 YEARS
     Route: 048
     Dates: start: 20070101, end: 20100113
  3. ZYPREXA [Suspect]
     Dosage: 1X PO  4 - 8 YEARS
     Route: 048
     Dates: start: 20070101, end: 20100113

REACTIONS (7)
  - CHOKING [None]
  - DYSKINESIA [None]
  - LIVER DISORDER [None]
  - MUSCLE DISORDER [None]
  - OROPHARYNGEAL PAIN [None]
  - SWELLING FACE [None]
  - TONGUE DISORDER [None]
